FAERS Safety Report 4353464-6 (Version None)
Quarter: 2004Q2

REPORT INFORMATION
  Report Type: 
  Country: None (occurrence: None)
  Receive Date: 20040430
  Receipt Date: 20040420
  Transmission Date: 20050107
  Serious: Yes (Hospitalization)
  Sender: FDA-Public Use
  Company Number: FABR-10502

PATIENT
  Age: 43 Year
  Sex: Male
  Weight: 43 kg

DRUGS (1)
  1. FABRAZYME [Suspect]
     Indication: FABRY'S DISEASE
     Dosage: 1 MG/KG IV
     Route: 042
     Dates: start: 20010330

REACTIONS (1)
  - MENIERE'S DISEASE [None]
